FAERS Safety Report 24827286 (Version 1)
Quarter: 2025Q1

REPORT INFORMATION
  Report Type: Spontaneous
  Country: US (occurrence: US)
  Receive Date: 20250109
  Receipt Date: 20250109
  Transmission Date: 20250409
  Serious: No
  Sender: SANOFI AVENTIS
  Company Number: US-SA-2025SA007088

PATIENT
  Sex: Female

DRUGS (9)
  1. DUPIXENT [Suspect]
     Active Substance: DUPILUMAB
     Indication: Adrenocortical insufficiency acute
     Dosage: 300MG/QOW
     Route: 058
     Dates: start: 2023
  2. ATORVASTATIN [Concomitant]
     Active Substance: ATORVASTATIN
  3. CLONAZEPAM [Concomitant]
     Active Substance: CLONAZEPAM
  4. FAMOTIDINE [Concomitant]
     Active Substance: FAMOTIDINE
  5. LEVOXYL [Concomitant]
     Active Substance: LEVOTHYROXINE SODIUM
  6. LINZESS [Concomitant]
     Active Substance: LINACLOTIDE
  7. OZEMPIC [Concomitant]
     Active Substance: SEMAGLUTIDE
  8. VRAYLAR [Concomitant]
     Active Substance: CARIPRAZINE
  9. VALSARTAN [Concomitant]
     Active Substance: VALSARTAN

REACTIONS (6)
  - Depression [Unknown]
  - Decreased interest [Unknown]
  - Disturbance in attention [Unknown]
  - Bradykinesia [Unknown]
  - Psychiatric symptom [Unknown]
  - Product use in unapproved indication [Unknown]
